FAERS Safety Report 9912406 (Version 2)
Quarter: 2015Q4

REPORT INFORMATION
  Report Type: Report from Study
  Country: US (occurrence: US)
  Receive Date: 20140220
  Receipt Date: 20151026
  Transmission Date: 20160305
  Serious: Yes (Other)
  Sender: FDA-Public Use
  Company Number: US-ROCHE-1237204

PATIENT
  Age: 56 Year
  Sex: Female

DRUGS (15)
  1. LUCENTIS [Suspect]
     Active Substance: RANIBIZUMAB
     Indication: DIABETIC RETINAL OEDEMA
     Route: 050
     Dates: start: 20121129
  2. PHENYLEPHRINE [Concomitant]
     Active Substance: PHENYLEPHRINE\PHENYLEPHRINE HYDROCHLORIDE
     Route: 065
  3. AVASTIN [Suspect]
     Active Substance: BEVACIZUMAB
     Indication: DIABETIC RETINAL OEDEMA
     Route: 050
  4. GLIBENCLAMIDE [Concomitant]
     Active Substance: GLYBURIDE
  5. GLYBURIDE. [Concomitant]
     Active Substance: GLYBURIDE
  6. BETADINE [Concomitant]
     Active Substance: POVIDONE-IODINE
  7. LUCENTIS [Suspect]
     Active Substance: RANIBIZUMAB
     Indication: MACULAR OEDEMA
  8. AVASTIN [Suspect]
     Active Substance: BEVACIZUMAB
     Indication: MACULAR OEDEMA
  9. AVASTIN [Suspect]
     Active Substance: BEVACIZUMAB
     Indication: DIABETIC EYE DISEASE
  10. METFORMIN HYDROCHLORIDE. [Concomitant]
     Active Substance: METFORMIN HYDROCHLORIDE
     Route: 065
  11. TETRAVISC [Concomitant]
     Active Substance: TETRACAINE HYDROCHLORIDE
  12. NIACIN. [Concomitant]
     Active Substance: NIACIN
     Route: 048
  13. LUCENTIS [Suspect]
     Active Substance: RANIBIZUMAB
     Indication: DIABETIC EYE DISEASE
  14. MYDRIACYL [Concomitant]
     Active Substance: TROPICAMIDE
  15. EYLEA [Concomitant]
     Active Substance: AFLIBERCEPT
     Route: 050

REACTIONS (18)
  - Ophthalmological examination abnormal [Unknown]
  - Eye irritation [Unknown]
  - Visual acuity reduced transiently [Unknown]
  - Macular oedema [Not Recovered/Not Resolved]
  - Eye pruritus [Unknown]
  - Product use issue [Unknown]
  - Crying [Unknown]
  - Cataract cortical [Unknown]
  - Blood glucose increased [Unknown]
  - Blindness [Unknown]
  - Visual impairment [Unknown]
  - Metamorphopsia [Unknown]
  - Oropharyngeal pain [Unknown]
  - Cataract [Unknown]
  - Visual acuity reduced [Unknown]
  - Eye pain [Unknown]
  - Cataract nuclear [Unknown]
  - Drug ineffective [Unknown]

NARRATIVE: CASE EVENT DATE: 20130117
